FAERS Safety Report 7398092-3 (Version None)
Quarter: 2011Q2

REPORT INFORMATION
  Report Type: 
  Country: None (occurrence: None)
  Receive Date: 20110406
  Receipt Date: 20110329
  Transmission Date: 20111010
  Serious: Yes (Death)
  Sender: FDA-Public Use
  Company Number: DE-GENZYME-RENA-1001132

PATIENT
  Sex: Male
  Weight: 87 kg

DRUGS (19)
  1. RAMIPRIL [Concomitant]
     Indication: BLOOD PRESSURE
     Dosage: 10 MG, BID
  2. FENISTIL [Concomitant]
     Indication: HYPERSENSITIVITY
  3. RENVELA [Suspect]
     Indication: HYPERPHOSPHATAEMIA
     Dosage: 0.8 G, QD
     Dates: start: 20100313, end: 20100625
  4. LOOP DIURETIC [Concomitant]
     Indication: PRODUCT USED FOR UNKNOWN INDICATION
  5. ADDIVIT [Concomitant]
     Indication: VITAMIN SUPPLEMENTATION
  6. LOPERAMID AL [Concomitant]
     Indication: HYPERSENSITIVITY
     Dosage: UNK
  7. IRON SUBSTITUTION [Concomitant]
     Indication: PRODUCT USED FOR UNKNOWN INDICATION
  8. ACE INHIBITOR NOS [Concomitant]
     Indication: PRODUCT USED FOR UNKNOWN INDICATION
  9. BETARECEPTOR BLOCKER [Concomitant]
     Indication: PRODUCT USED FOR UNKNOWN INDICATION
  10. METOPROLOL AL [Concomitant]
     Indication: BLOOD PRESSURE
  11. AMLODIPINE [Concomitant]
     Indication: BLOOD PRESSURE
     Dosage: 5 MG, BID
  12. COLECALCIFEROL [Concomitant]
     Indication: VITAMIN D
     Dosage: 20000 IU, Q2W
  13. FUROSEMIDE [Concomitant]
     Indication: PRODUCT USED FOR UNKNOWN INDICATION
     Dosage: 40 MG, BID
  14. CALCIUM ACETATE [Concomitant]
     Indication: BLOOD PHOSPHORUS ABNORMAL
     Dosage: 475 MG, QD
  15. CALCIUM ANTAGONIST [Concomitant]
     Indication: PRODUCT USED FOR UNKNOWN INDICATION
  16. EPOGEN [Concomitant]
     Indication: PRODUCT USED FOR UNKNOWN INDICATION
  17. MOXONIDIN HEXAL [Concomitant]
     Indication: BLOOD PRESSURE
     Dosage: 0.2 MG, TID
  18. PANTOZOL [Concomitant]
     Indication: GASTRIC DISORDER
     Dosage: 40 MG, QD
  19. FENISTIL [Concomitant]
     Indication: PRURITUS
     Dosage: UNK

REACTIONS (1)
  - DEATH [None]
